FAERS Safety Report 6963449-9 (Version None)
Quarter: 2010Q3

REPORT INFORMATION
  Report Type: 
  Country: None (occurrence: None)
  Receive Date: 20100902
  Receipt Date: 20100824
  Transmission Date: 20110219
  Serious: Yes (Other)
  Sender: FDA-Public Use
  Company Number: B0671491A

PATIENT
  Age: 16 Year
  Sex: Male

DRUGS (1)
  1. MALARONE [Suspect]
     Indication: MALARIA PROPHYLAXIS
     Dosage: 250MG PER DAY
     Route: 048
     Dates: start: 20100720, end: 20100731

REACTIONS (7)
  - CONVERSION DISORDER [None]
  - DIARRHOEA [None]
  - DIZZINESS [None]
  - HALLUCINATION [None]
  - NAUSEA [None]
  - PANIC ATTACK [None]
  - TINNITUS [None]
